FAERS Safety Report 8543725-9 (Version None)
Quarter: 2012Q3

REPORT INFORMATION
  Report Type: 
  Country: None (occurrence: None)
  Receive Date: 20120727
  Receipt Date: 20120723
  Transmission Date: 20120928
  Serious: Yes (Death)
  Sender: FDA-Public Use
  Company Number: JP-ELI_LILLY_AND_COMPANY-JP201207007023

PATIENT
  Age: 65 Year
  Sex: Female

DRUGS (3)
  1. CARBOPLATIN [Concomitant]
  2. ALIMTA [Suspect]
  3. AVASTIN [Concomitant]

REACTIONS (1)
  - FUNCTIONAL GASTROINTESTINAL DISORDER [None]
